FAERS Safety Report 8289994 (Version 3)
Quarter: 2014Q1

REPORT INFORMATION
  Report Type: Spontaneous
  Country: US (occurrence: None)
  Receive Date: 20111122
  Receipt Date: 20130107
  Transmission Date: 20141002
  Serious: No
  Sender: FDA-Public Use
  Company Number: PHHY2011US54712

PATIENT
  Age: 52 Year
  Sex: Female
  Weight: 68.9 kg

DRUGS (3)
  1. GILENYA [Suspect]
     Indication: MULTIPLE SCLEROSIS
     Dosage: 0.5 MG, QD, ORAL
     Route: 048
     Dates: start: 20110604
  2. SERTRALINE [Concomitant]
  3. AMPHETAMINE [Concomitant]

REACTIONS (11)
  - Fatigue [None]
  - Somnolence [None]
  - Bronchitis [None]
  - Malaise [None]
  - Sinus congestion [None]
  - Oropharyngeal pain [None]
  - Cough [None]
  - Chest discomfort [None]
  - Bronchospasm [None]
  - Wheezing [None]
  - Pyrexia [None]
